FAERS Safety Report 11276902 (Version 1)
Quarter: 2015Q3

REPORT INFORMATION
  Report Type: Report from Study
  Country: CO (occurrence: CO)
  Receive Date: 20150716
  Receipt Date: 20150716
  Transmission Date: 20151125
  Serious: Yes (Death)
  Sender: FDA-Public Use
  Company Number: PHHY2015CO082533

PATIENT
  Age: 11 Year

DRUGS (1)
  1. TOBI PODHALER [Suspect]
     Active Substance: TOBRAMYCIN
     Indication: CYSTIC FIBROSIS
     Dosage: 112 MG/KG, Q12H
     Route: 055
     Dates: start: 20141010, end: 20141129

REACTIONS (2)
  - Cystic fibrosis [Fatal]
  - Condition aggravated [Fatal]
